FAERS Safety Report 24737470 (Version 1)
Quarter: 2024Q4

REPORT INFORMATION
  Report Type: Spontaneous
  Country: CN (occurrence: CN)
  Receive Date: 20241216
  Receipt Date: 20241216
  Transmission Date: 20250115
  Serious: Yes (Other)
  Sender: ROCHE
  Company Number: CN-CHEPLA-2024015513

PATIENT
  Age: 69 Year
  Sex: Female
  Weight: 58 kg

DRUGS (6)
  1. CAPECITABINE [Suspect]
     Active Substance: CAPECITABINE
     Indication: Colon cancer
     Dosage: 0.50 DAY
     Route: 048
  2. CAPECITABINE [Suspect]
     Active Substance: CAPECITABINE
     Dosage: APPROVAL NO. GYZZ H20073023; UNDERGONE 8 CHEMOTHERAPY SESSIONS; 0.50 DAY
     Route: 048
     Dates: start: 20240327, end: 20240409
  3. AVASTIN [Suspect]
     Active Substance: BEVACIZUMAB
     Indication: Colon cancer
     Dosage: 400 MG INTRAVENOUS DRIP DAILY, ADMINISTERED EVERY THREE WEEKS. UNDERGONE 8 CHEMOTHERAPY SESSIONS
     Route: 042
  4. TISLELIZUMAB [Suspect]
     Active Substance: TISLELIZUMAB
     Indication: Colon cancer
     Dosage: 200MG INTRAVENOUS DRIP DAILY, ADMINISTERED EVERY THREE WEEKS. UNDERGONE 8 CHEMOTHERAPY SESSIONS
     Route: 042
  5. OXALIPLATIN [Suspect]
     Active Substance: OXALIPLATIN
     Indication: Colon cancer
     Dosage: 200 MG INTRAVENOUS DRIP DAILY, ADMINISTERED EVERY THREE WEEKS
     Route: 042
  6. OXALIPLATIN [Suspect]
     Active Substance: OXALIPLATIN
     Dosage: APPROVAL NO. GYZZ H20213313; UNDERGONE 8 CHEMOTHERAPY SESSIONS
     Route: 042
     Dates: start: 20240327, end: 20240327

REACTIONS (1)
  - Myelosuppression [Recovering/Resolving]

NARRATIVE: CASE EVENT DATE: 20240418
